FAERS Safety Report 5708010-9 (Version None)
Quarter: 2008Q2

REPORT INFORMATION
  Report Type: 
  Country: None (occurrence: None)
  Receive Date: 20080417
  Receipt Date: 20080407
  Transmission Date: 20081010
  Serious: Yes (Other)
  Sender: FDA-Public Use
  Company Number: US-ABBOTT-08P-163-0445882-00

PATIENT
  Sex: Female
  Weight: 55.388 kg

DRUGS (6)
  1. HUMIRA [Suspect]
     Indication: CROHN'S DISEASE
     Route: 058
     Dates: start: 20080313, end: 20080313
  2. HUMIRA [Suspect]
     Route: 058
     Dates: start: 20080327
  3. HUMIRA [Suspect]
     Route: 058
     Dates: start: 20080228, end: 20080228
  4. PREDNISONE [Concomitant]
     Indication: CROHN'S DISEASE
     Route: 048
     Dates: start: 20080101
  5. VENLAFAXINE HCL [Concomitant]
     Indication: HYPERHIDROSIS
     Route: 048
  6. PANTOPRAZOLE SODIUM [Concomitant]
     Indication: GASTRIC DISORDER
     Route: 048
     Dates: start: 20070101

REACTIONS (5)
  - CHEST PAIN [None]
  - DYSPHAGIA [None]
  - INCREASED TENDENCY TO BRUISE [None]
  - SCLERODERMA [None]
  - VISUAL DISTURBANCE [None]
